FAERS Safety Report 8277770-8 (Version None)
Quarter: 2012Q2

REPORT INFORMATION
  Report Type: 
  Country: None (occurrence: None)
  Receive Date: 20120412
  Receipt Date: 20120404
  Transmission Date: 20120825
  Serious: Yes (Hospitalization, Other)
  Sender: FDA-Public Use
  Company Number: US-JNJFOC-20120402026

PATIENT
  Sex: Female
  Weight: 111.59 kg

DRUGS (21)
  1. ZOCOR [Concomitant]
     Dosage: DAILY
     Route: 065
  2. CHORIONIC GONADOTROPIN [Concomitant]
     Indication: HEADACHE
     Dosage: AS NEEDED
     Route: 065
  3. SEROQUEL [Concomitant]
     Indication: GASTRIC ULCER
     Route: 065
  4. SYNTHROID [Concomitant]
     Indication: THYROID DISORDER
     Dosage: DAILY
     Route: 065
  5. EFFEXOR XR [Suspect]
     Indication: DEPRESSION
     Route: 048
  6. PLAVIX [Concomitant]
     Dosage: DAILY
     Route: 065
  7. PAXIL [Concomitant]
     Route: 065
  8. WELLBUTRIN [Concomitant]
     Dosage: DAILY
     Route: 065
  9. CARAFATE [Concomitant]
     Route: 065
  10. NEURONTIN [Concomitant]
     Indication: NEURALGIA
     Route: 065
  11. REMERON [Concomitant]
     Dosage: DAILY
     Route: 065
  12. RISPERIDONE [Suspect]
     Indication: PRODUCT USED FOR UNKNOWN INDICATION
     Route: 065
  13. LITHIUM [Suspect]
     Indication: PRODUCT USED FOR UNKNOWN INDICATION
     Route: 065
  14. ALAVERT [Concomitant]
     Dosage: DAILY
     Route: 065
  15. LISINOPRIL [Concomitant]
     Route: 065
  16. ASPIRIN [Concomitant]
     Dosage: DAILY
     Route: 065
  17. NEXIUM [Concomitant]
     Route: 065
  18. KLONOPIN [Concomitant]
     Route: 065
  19. NITROSTAT [Concomitant]
     Route: 065
  20. HYDROCHLOROTHIAZIDE [Concomitant]
     Dosage: DAILY
     Route: 065
  21. IMDUR [Concomitant]
     Dosage: DAILY
     Route: 065

REACTIONS (6)
  - TOXICITY TO VARIOUS AGENTS [None]
  - RENAL DISORDER [None]
  - MALAISE [None]
  - ABNORMAL BEHAVIOUR [None]
  - WEIGHT INCREASED [None]
  - SUICIDE ATTEMPT [None]
